FAERS Safety Report 7921468-X (Version None)
Quarter: 2011Q4

REPORT INFORMATION
  Report Type: 
  Country: None (occurrence: None)
  Receive Date: 20111117
  Receipt Date: 20110304
  Transmission Date: 20120403
  Serious: No
  Sender: FDA-Public Use
  Company Number: US-MYLANLABS-2011S1004494

PATIENT
  Sex: Male

DRUGS (2)
  1. NADOLOL [Suspect]
     Indication: BLOOD PRESSURE INCREASED
     Route: 048
     Dates: start: 20110201, end: 20110201
  2. NADOLOL [Suspect]
     Route: 048
     Dates: start: 20110201, end: 20110201

REACTIONS (2)
  - CONFUSIONAL STATE [None]
  - DIZZINESS [None]
